FAERS Safety Report 5227013-4 (Version None)
Quarter: 2007Q1

REPORT INFORMATION
  Report Type: 
  Country: None (occurrence: None)
  Receive Date: 20070202
  Receipt Date: 20070122
  Transmission Date: 20070707
  Serious: Yes (Hospitalization)
  Sender: FDA-Public Use
  Company Number: DEWYE954427DEC06

PATIENT
  Sex: Male
  Weight: 75 kg

DRUGS (5)
  1. VENLAFAXINE HYDROCHLORIDE [Suspect]
     Dosage: 5 CAPSULES (OVERDOSE AMOUNT 750 MG)
     Route: 048
     Dates: start: 20061224, end: 20061224
  2. LORMETAZEPAM [Suspect]
     Dosage: OVERDOSE AMOUNT 4 MG
     Route: 048
     Dates: start: 20061224, end: 20061224
  3. LORAZEPAM [Suspect]
     Dosage: OVERDOSE AMOUNT 3 MG
     Route: 048
     Dates: start: 20061224, end: 20061224
  4. ALCOHOL [Suspect]
     Dosage: AMOUNT UNKNOWN
     Route: 048
     Dates: start: 20061224, end: 20061224
  5. PIPAMPERONE [Suspect]
     Dosage: OVERDOSE AMOUNT 960 MG
     Route: 048
     Dates: start: 20061224, end: 20061224

REACTIONS (6)
  - COORDINATION ABNORMAL [None]
  - DRUG ABUSER [None]
  - DYSARTHRIA [None]
  - INTENTIONAL OVERDOSE [None]
  - SOMNOLENCE [None]
  - TACHYCARDIA [None]
